FAERS Safety Report 26001227 (Version 2)
Quarter: 2025Q4

REPORT INFORMATION
  Report Type: Spontaneous
  Country: US (occurrence: US)
  Receive Date: 20251105
  Receipt Date: 20251119
  Transmission Date: 20260117
  Serious: Yes (Death, Other)
  Sender: BRISTOL-MYERS SQUIBB COMPANY
  Company Number: US-BRISTOL-MYERS SQUIBB COMPANY-2025-149830

PATIENT
  Age: 31 Year
  Sex: Female

DRUGS (52)
  1. OPDIVO [Suspect]
     Active Substance: NIVOLUMAB
     Indication: Breast angiosarcoma metastatic
     Dosage: 480 MG?2 OF 13 CYCLES FOR BREAST ANGIOSARCOMA?METASTATIC [MALIGNANT NEOPLASM OF CONNECTIVE AND SOFT TISSUE, UNSPECIFIED/BREAST ANGIOSARCOMA/ METASTATIC ANGIOSARCOMA OF BREAST]
     Route: 042
  2. CABOMETYX [Suspect]
     Active Substance: CABOZANTINIB S-MALATE
     Indication: Breast angiosarcoma metastatic
     Dosage: 40 MG, QD
     Route: 048
     Dates: start: 20250802, end: 20250809
  3. CABOMETYX [Suspect]
     Active Substance: CABOZANTINIB S-MALATE
     Indication: Breast angiosarcoma
  4. POTASSIUM PHOSPHATE, MONOBASIC [Concomitant]
     Active Substance: POTASSIUM PHOSPHATE, MONOBASIC
     Indication: Product used for unknown indication
  5. POTASSIUM PHOSPHATE, MONOBASIC [Concomitant]
     Active Substance: POTASSIUM PHOSPHATE, MONOBASIC
  6. POTASSIUM CHLORIDE [Concomitant]
     Active Substance: POTASSIUM CHLORIDE
     Indication: Product used for unknown indication
  7. POTASSIUM CHLORIDE [Concomitant]
     Active Substance: POTASSIUM CHLORIDE
  8. COMPAZINE [Concomitant]
     Active Substance: PROCHLORPERAZINE MALEATE
     Indication: Nausea
  9. COMPAZINE [Concomitant]
     Active Substance: PROCHLORPERAZINE MALEATE
     Indication: Vomiting
  10. SENNA S [Concomitant]
     Active Substance: DOCUSATE SODIUM\SENNOSIDES
     Indication: Product used for unknown indication
  11. SENNA S [Concomitant]
     Active Substance: DOCUSATE SODIUM\SENNOSIDES
  12. SILVER SULFADIAZINE [Concomitant]
     Active Substance: SILVER SULFADIAZINE
     Indication: Product used for unknown indication
  13. SILVER SULFADIAZINE [Concomitant]
     Active Substance: SILVER SULFADIAZINE
  14. TRAMADOL HCL [Concomitant]
     Active Substance: TRAMADOL HYDROCHLORIDE
     Indication: Product used for unknown indication
  15. TRAMADOL HCL [Concomitant]
     Active Substance: TRAMADOL HYDROCHLORIDE
  16. UREA [Concomitant]
     Active Substance: UREA
     Indication: Product used for unknown indication
  17. UREA [Concomitant]
     Active Substance: UREA
  18. VENLAFAXINE [Concomitant]
     Active Substance: VENLAFAXINE HYDROCHLORIDE
     Indication: Product used for unknown indication
  19. VENLAFAXINE [Concomitant]
     Active Substance: VENLAFAXINE HYDROCHLORIDE
  20. ZOLPIDEM [Concomitant]
     Active Substance: ZOLPIDEM TARTRATE
     Indication: Product used for unknown indication
  21. ZOLPIDEM [Concomitant]
     Active Substance: ZOLPIDEM TARTRATE
  22. XANAX [Concomitant]
     Active Substance: ALPRAZOLAM
     Indication: Product used for unknown indication
  23. CODEINE [Concomitant]
     Active Substance: CODEINE
     Indication: Cough
  24. NEURONTIN [Concomitant]
     Active Substance: GABAPENTIN
     Indication: Product used for unknown indication
  25. DILAUDID [Concomitant]
     Active Substance: HYDROMORPHONE HYDROCHLORIDE
     Indication: Pain
  26. DOLOPHINE [Concomitant]
     Active Substance: METHADONE HYDROCHLORIDE
     Indication: Product used for unknown indication
  27. ZYPREXA [Concomitant]
     Active Substance: OLANZAPINE
     Indication: Product used for unknown indication
  28. ZOFRAN [Concomitant]
     Active Substance: ONDANSETRON HYDROCHLORIDE
     Indication: Nausea
  29. ZOFRAN [Concomitant]
     Active Substance: ONDANSETRON HYDROCHLORIDE
     Indication: Vomiting
  30. PERCOCET [Concomitant]
     Active Substance: ACETAMINOPHEN\OXYCODONE HYDROCHLORIDE
     Indication: Pain
  31. MIRALAX [Concomitant]
     Active Substance: POLYETHYLENE GLYCOL 3350
     Indication: Product used for unknown indication
  32. MIRALAX [Concomitant]
     Active Substance: POLYETHYLENE GLYCOL 3350
  33. SENOKOT-S [Concomitant]
     Active Substance: DOCUSATE SODIUM\SENNOSIDES
     Indication: Product used for unknown indication
  34. SODIUM CHLORIDE [Concomitant]
     Active Substance: SODIUM CHLORIDE
     Indication: Product used for unknown indication
  35. SODIUM BICARBONATE [Concomitant]
     Active Substance: SODIUM BICARBONATE
     Indication: Product used for unknown indication
  36. KENALOG [Concomitant]
     Active Substance: TRIAMCINOLONE ACETONIDE
     Indication: Product used for unknown indication
  37. EFFEXOR [Concomitant]
     Active Substance: VENLAFAXINE HYDROCHLORIDE
     Indication: Product used for unknown indication
  38. TYLENOL [Concomitant]
     Active Substance: ACETAMINOPHEN
     Indication: Pain
  39. ASTRINGENT SOLUTION [Concomitant]
     Active Substance: ALUMINUM SULFATE TETRADECAHYDRATE\CALCIUM ACETATE MONOHYDRATE
     Indication: Product used for unknown indication
  40. TESSALON [Concomitant]
     Active Substance: BENZONATATE
     Indication: Cough
  41. ANUSOL HC [Concomitant]
     Active Substance: HYDROCORTISONE
     Indication: Haemorrhoids
  42. ADVIL [Concomitant]
     Active Substance: IBUPROFEN
     Indication: Pain
  43. MOTRIN [Concomitant]
     Active Substance: IBUPROFEN
     Indication: Pain
  44. IMODIUM A-D [Concomitant]
     Active Substance: LOPERAMIDE HYDROCHLORIDE
     Indication: Diarrhoea
  45. DIPHENHYDRAMINE HYDROCHLORIDE\LIDOCAINE HYDROCHLORIDE\NYSTATIN [Concomitant]
     Active Substance: DIPHENHYDRAMINE HYDROCHLORIDE\LIDOCAINE HYDROCHLORIDE\NYSTATIN
     Indication: Product used for unknown indication
  46. MAGNESIUM OXIDE [Concomitant]
     Active Substance: MAGNESIUM OXIDE
     Indication: Product used for unknown indication
  47. BACTROBAN [Concomitant]
     Active Substance: MUPIROCIN CALCIUM
     Indication: Product used for unknown indication
  48. NIFEDIPINE [Concomitant]
     Active Substance: NIFEDIPINE
     Indication: Pain
  49. LIDOCAINE [Concomitant]
     Active Substance: LIDOCAINE
     Indication: Pain
  50. Lidocaine;Zinc oxide [Concomitant]
     Indication: Product used for unknown indication
  51. Lidocaine;Nystatin [Concomitant]
     Indication: Product used for unknown indication
  52. PROCHLORPERAZINE [Concomitant]
     Active Substance: PROCHLORPERAZINE
     Indication: Product used for unknown indication

REACTIONS (1)
  - Malignant neoplasm progression [Fatal]
